FAERS Safety Report 18076987 (Version 3)
Quarter: 2021Q2

REPORT INFORMATION
  Report Type: Spontaneous
  Country: US (occurrence: US)
  Receive Date: 20200728
  Receipt Date: 20210420
  Transmission Date: 20210717
  Serious: Yes (Other)
  Sender: FDA-Public Use
  Company Number: US-ASTRAZENECA-2020SE92742

PATIENT
  Age: 26097 Day
  Sex: Female
  Weight: 76.7 kg

DRUGS (2)
  1. FULVESTRANT. [Suspect]
     Active Substance: FULVESTRANT
     Indication: BREAST CANCER METASTATIC
     Route: 030
  2. FULVESTRANT. [Suspect]
     Active Substance: FULVESTRANT
     Indication: BREAST CANCER METASTATIC
     Route: 030
     Dates: start: 20200120, end: 20200713

REACTIONS (2)
  - Injection site vesicles [Recovering/Resolving]
  - Injection site discomfort [Unknown]

NARRATIVE: CASE EVENT DATE: 20200715
